FAERS Safety Report 5481946-2 (Version None)
Quarter: 2007Q4

REPORT INFORMATION
  Report Type: 
  Country: None (occurrence: None)
  Receive Date: 20071005
  Receipt Date: 20070926
  Transmission Date: 20080405
  Serious: Yes (Other)
  Sender: FDA-Public Use
  Company Number: 41178

PATIENT
  Age: 16 Year
  Sex: Male

DRUGS (1)
  1. RANITIDINE [Suspect]
     Indication: PREOPERATIVE CARE
     Dosage: 50 MG INTRA-ARTERIALLY X1
     Dates: start: 20070925

REACTIONS (2)
  - INJECTION SITE ERYTHEMA [None]
  - MEDICATION ERROR [None]
